FAERS Safety Report 8115972-1 (Version None)
Quarter: 2012Q1

REPORT INFORMATION
  Report Type: 
  Country: None (occurrence: None)
  Receive Date: 20120206
  Receipt Date: 20120130
  Transmission Date: 20120608
  Serious: No
  Sender: FDA-Public Use
  Company Number: US-B.I. PHARMACEUTICALS,INC./RIDGEFIELD-2012-BP-01810BP

PATIENT
  Sex: Male

DRUGS (14)
  1. FUROSEMIDE [Concomitant]
     Indication: CARDIAC FAILURE CONGESTIVE
  2. CALCIUM/D3 [Concomitant]
     Indication: SUPPLEMENTATION THERAPY
  3. PRADAXA [Suspect]
     Indication: ATRIAL FIBRILLATION
     Dosage: 300 MG
     Route: 048
     Dates: start: 20120109
  4. BUPROPION HCL [Concomitant]
     Indication: DEPRESSION
     Dates: start: 20111101
  5. GLUCOSAMINE [Concomitant]
     Indication: SUPPLEMENTATION THERAPY
  6. TEMAZEPAM [Concomitant]
     Indication: INSOMNIA
     Dosage: 15 MG
  7. CYANOCOBALAMIN [Concomitant]
     Indication: DIABETIC NEUROPATHY
  8. LISINOPRIL [Concomitant]
     Indication: HYPERTENSION
  9. MELOXICAM [Concomitant]
     Indication: ARTHRITIS
  10. SIMVASTATIN [Concomitant]
     Indication: BLOOD CHOLESTEROL INCREASED
  11. ESTER C [Concomitant]
     Indication: SUPPLEMENTATION THERAPY
  12. M.V.I. [Concomitant]
     Indication: SUPPLEMENTATION THERAPY
  13. CO Q10 [Concomitant]
     Indication: SUPPLEMENTATION THERAPY
  14. METOPROLOL TARTRATE [Concomitant]
     Indication: ATRIAL FIBRILLATION
     Dosage: 50 MG
     Route: 048

REACTIONS (1)
  - TINNITUS [None]
